FAERS Safety Report 5378483-2 (Version None)
Quarter: 2007Q3

REPORT INFORMATION
  Report Type: 
  Country: None (occurrence: None)
  Receive Date: 20070705
  Receipt Date: 20070625
  Transmission Date: 20080115
  Serious: Yes (Death, Hospitalization, Other)
  Sender: FDA-Public Use
  Company Number: US-JNJFOC-20070502439

PATIENT
  Sex: Female
  Weight: 71.5 kg

DRUGS (3)
  1. REMICADE [Suspect]
     Route: 042
  2. REMICADE [Suspect]
     Indication: PROCTITIS ULCERATIVE
     Route: 042
  3. MERCAPTOPURINE [Suspect]
     Indication: DRUG USE FOR UNKNOWN INDICATION
     Route: 048

REACTIONS (7)
  - DEEP VEIN THROMBOSIS [None]
  - DRUG EXPOSURE DURING PREGNANCY [None]
  - HEPATITIS VIRAL [None]
  - INTRA-UTERINE DEATH [None]
  - LUPUS-LIKE SYNDROME [None]
  - PERICARDIAL EFFUSION [None]
  - VIRAL PERICARDITIS [None]
